FAERS Safety Report 7619544-4 (Version None)
Quarter: 2011Q3

REPORT INFORMATION
  Report Type: 
  Country: None (occurrence: None)
  Receive Date: 20110719
  Receipt Date: 20110708
  Transmission Date: 20111222
  Serious: Yes (Hospitalization)
  Sender: FDA-Public Use
  Company Number: IE-JNJFOC-20110704351

PATIENT
  Sex: Female

DRUGS (11)
  1. LYRICA [Concomitant]
  2. MOTILIUM [Concomitant]
  3. SIMPONI [Suspect]
     Indication: RHEUMATOID ARTHRITIS
     Route: 058
     Dates: start: 20101027
  4. PREDNISOLONE [Concomitant]
  5. FUROSEMIDE [Concomitant]
  6. LEVOTHYROXINE SODIUM [Concomitant]
  7. VENTOLIN HFA [Concomitant]
  8. PRAVASTATIN SODIUM [Concomitant]
  9. ALDACTONE [Concomitant]
  10. ORUVAIL [Concomitant]
  11. PRILOSEC [Concomitant]

REACTIONS (1)
  - MALAISE [None]
